FAERS Safety Report 23980592 (Version 1)
Quarter: 2024Q2

REPORT INFORMATION
  Report Type: Spontaneous
  Country: US (occurrence: US)
  Receive Date: 20240617
  Receipt Date: 20240617
  Transmission Date: 20240715
  Serious: No
  Sender: FDA-Public Use
  Company Number: US-APOTEX-2023AP011456

PATIENT

DRUGS (2)
  1. GEMCITABINE [Suspect]
     Active Substance: GEMCITABINE
     Indication: Pancreatic carcinoma metastatic
     Dosage: 1000 MILLIGRAM/SQ. METER  ON DAYS 1, 8, AND 15 OF 28 DAYS CYCLE
     Route: 065
  2. PACLITAXEL [Suspect]
     Active Substance: PACLITAXEL
     Indication: Pancreatic carcinoma metastatic
     Dosage: 100 MILLIGRAM/SQ. METER ON DAYS 1, 8, AND 15 OF 28 DAYS CYCLE
     Route: 065

REACTIONS (2)
  - Toxicity to various agents [Unknown]
  - Fatigue [Unknown]
